FAERS Safety Report 7079265-6 (Version None)
Quarter: 2010Q4

REPORT INFORMATION
  Report Type: 
  Country: None (occurrence: None)
  Receive Date: 20101102
  Receipt Date: 20101029
  Transmission Date: 20110411
  Serious: Yes (Hospitalization, Other)
  Sender: FDA-Public Use
  Company Number: BR-ROCHE-737591

PATIENT
  Sex: Female
  Weight: 59 kg

DRUGS (10)
  1. RIVOTRIL [Suspect]
     Indication: MENOPAUSAL SYMPTOMS
     Dosage: DOSE: 2.5 MG/ML, OTHER INDICATION: ANXIETY
     Route: 048
     Dates: start: 20091201
  2. RIVOTRIL [Suspect]
     Route: 048
  3. RIVOTRIL [Suspect]
     Route: 065
     Dates: start: 20030101, end: 20030101
  4. PAROXETINE HCL [Suspect]
     Indication: DEPRESSION
     Route: 065
  5. CEBRILIN [Concomitant]
     Indication: DEPRESSION
     Dates: start: 20091201
  6. CEBRILIN [Concomitant]
  7. ASPIRIN [Concomitant]
     Indication: HEADACHE
  8. DORIL [Concomitant]
     Indication: HEADACHE
  9. NEOSALDINA [Concomitant]
     Indication: HEADACHE
  10. EPOCLER [Concomitant]
     Indication: NAUSEA

REACTIONS (6)
  - BENIGN BREAST NEOPLASM [None]
  - DRUG ADMINISTRATION ERROR [None]
  - DRUG INEFFECTIVE [None]
  - HYPERSENSITIVITY [None]
  - HYPERTENSION [None]
  - SEDATION [None]
